FAERS Safety Report 19230790 (Version 2)
Quarter: 2021Q2

REPORT INFORMATION
  Report Type: Report from Study
  Country: CZ (occurrence: CZ)
  Receive Date: 20210507
  Receipt Date: 20210616
  Transmission Date: 20210717
  Serious: Yes (Other)
  Sender: FDA-Public Use
  Company Number: NVSC2020CZ303988

PATIENT
  Age: 40 Year
  Sex: Female
  Weight: 65 kg

DRUGS (2)
  1. GILENYA [Suspect]
     Active Substance: FINGOLIMOD HYDROCHLORIDE
     Indication: MULTIPLE SCLEROSIS
     Dosage: UNK
     Route: 065
     Dates: start: 20160229, end: 20200326
  2. GILENYA [Suspect]
     Active Substance: FINGOLIMOD HYDROCHLORIDE
     Indication: RELAPSING-REMITTING MULTIPLE SCLEROSIS

REACTIONS (9)
  - Pre-eclampsia [Unknown]
  - Delivery [Unknown]
  - Gestational diabetes [Unknown]
  - Toxoplasmosis [Unknown]
  - Oligohydramnios [Unknown]
  - Normal newborn [Unknown]
  - Multiple sclerosis [Unknown]
  - Maternal exposure during pregnancy [Unknown]
  - Gestational hypertension [Unknown]

NARRATIVE: CASE EVENT DATE: 20201114
